FAERS Safety Report 14532081 (Version 2)
Quarter: 2018Q2

REPORT INFORMATION
  Report Type: Report from Study
  Country: US (occurrence: US)
  Receive Date: 20180214
  Receipt Date: 20180613
  Transmission Date: 20180711
  Serious: Yes (Other)
  Sender: FDA-Public Use
  Company Number: PHEH2018US005078

PATIENT
  Sex: Female

DRUGS (2)
  1. GILENYA [Suspect]
     Active Substance: FINGOLIMOD HYDROCHLORIDE
     Indication: MULTIPLE SCLEROSIS
     Dosage: 0.5 MG, QD (10 MONTHS AGO)
     Route: 048
  2. GILENYA [Suspect]
     Active Substance: FINGOLIMOD HYDROCHLORIDE
     Dosage: 0.5 MG, QOD
     Route: 048

REACTIONS (19)
  - Dizziness [Unknown]
  - Back pain [Unknown]
  - Amnesia [Unknown]
  - Visual impairment [Unknown]
  - Skin discolouration [Not Recovered/Not Resolved]
  - Leukopenia [Not Recovered/Not Resolved]
  - Feeling cold [Unknown]
  - Mood altered [Unknown]
  - Dysstasia [Unknown]
  - Musculoskeletal stiffness [Unknown]
  - Prescribed underdose [Unknown]
  - Muscular weakness [Not Recovered/Not Resolved]
  - Memory impairment [Unknown]
  - Pain in extremity [Unknown]
  - Somnolence [Unknown]
  - Confusional state [Unknown]
  - Vision blurred [Unknown]
  - Headache [Unknown]
  - Asthenia [Unknown]
